FAERS Safety Report 10813214 (Version 1)
Quarter: 2015Q1

REPORT INFORMATION
  Report Type: Report from Study
  Country: US (occurrence: US)
  Receive Date: 20150218
  Receipt Date: 20150218
  Transmission Date: 20150721
  Serious: No
  Sender: FDA-Public Use
  Company Number: US-ABBVIE-14K-163-1271569-00

PATIENT
  Age: 63 Year
  Sex: Male
  Weight: 68.1 kg

DRUGS (5)
  1. HUMIRA [Suspect]
     Active Substance: ADALIMUMAB
     Dates: start: 201406
  2. UNKNOWN TOPICAL [Concomitant]
     Indication: PSORIASIS
     Route: 061
  3. HUMIRA [Suspect]
     Active Substance: ADALIMUMAB
     Dates: start: 201312, end: 201312
  4. HUMIRA [Suspect]
     Active Substance: ADALIMUMAB
     Dates: start: 201312, end: 201406
  5. HUMIRA [Suspect]
     Active Substance: ADALIMUMAB
     Indication: COLITIS ULCERATIVE
     Dates: start: 201312, end: 201312

REACTIONS (3)
  - Drug effect incomplete [Not Recovered/Not Resolved]
  - Frequent bowel movements [Recovered/Resolved]
  - Diarrhoea [Recovered/Resolved]

NARRATIVE: CASE EVENT DATE: 201406
